FAERS Safety Report 9827480 (Version 4)
Quarter: 2014Q2

REPORT INFORMATION
  Report Type: Spontaneous
  Country: IT (occurrence: IT)
  Receive Date: 20140117
  Receipt Date: 20140414
  Transmission Date: 20141212
  Serious: Yes (Hospitalization)
  Sender: FDA-Public Use
  Company Number: IT-VERTEX PHARMACEUTICALS INC-2014-000229

PATIENT
  Age: 56 Year
  Sex: Female
  Weight: 60 kg

DRUGS (4)
  1. INCIVO [Suspect]
     Indication: CHRONIC HEPATITIS
     Dosage: 1125 MG, BID
     Route: 048
     Dates: start: 20131211, end: 20131224
  2. INCIVO [Suspect]
     Indication: HEPATITIS C
  3. COPEGUS [Suspect]
     Indication: CHRONIC HEPATITIS C
     Dosage: 400 MG, UNK
     Route: 048
     Dates: start: 20131211, end: 20131224
  4. PEGASYS [Suspect]
     Indication: CHRONIC HEPATITIS C
     Dosage: 180 ?G, QW
     Route: 058
     Dates: start: 20131211, end: 20131224

REACTIONS (3)
  - Lymphadenopathy [Unknown]
  - Angioedema [Unknown]
  - Cellulitis orbital [Unknown]
